FAERS Safety Report 9757497 (Version 2)
Quarter: 2014Q2

REPORT INFORMATION
  Report Type: Report from Study
  Country: US (occurrence: US)
  Receive Date: 20131215
  Receipt Date: 20140409
  Transmission Date: 20141212
  Serious: Yes (Death)
  Sender: FDA-Public Use
  Company Number: US-ROCHE-1320227

PATIENT
  Sex: Female

DRUGS (2)
  1. AVASTIN [Suspect]
     Indication: BREAST CANCER
     Route: 065
  2. AVASTIN [Suspect]
     Indication: HEPATIC CANCER

REACTIONS (1)
  - Death [Fatal]
